FAERS Safety Report 5208634-1 (Version None)
Quarter: 2007Q1

REPORT INFORMATION
  Report Type: 
  Country: None (occurrence: None)
  Receive Date: 20070116
  Receipt Date: 20070110
  Transmission Date: 20070707
  Serious: Yes (Death, Hospitalization, Other)
  Sender: FDA-Public Use
  Company Number: PHEH2006US15241

PATIENT
  Age: 74 Year
  Sex: Male

DRUGS (14)
  1. EXJADE [Suspect]
     Indication: MYELODYSPLASTIC SYNDROME
     Dosage: 2500 MG, QD
     Route: 048
     Dates: start: 20060523
  2. CYMBALTA [Concomitant]
  3. SENOKOT                                 /UNK/ [Concomitant]
  4. ZANTAC [Concomitant]
  5. OCUVITE [Concomitant]
  6. DIFLUCAN [Concomitant]
  7. KLONOPIN [Concomitant]
  8. LEVAQUIN [Concomitant]
  9. GLYBURIDE [Concomitant]
  10. LASIX [Concomitant]
  11. TYLENOL [Concomitant]
  12. POTASSIUM ACETATE [Concomitant]
  13. FOSAMAX [Concomitant]
  14. PREDNISONE TAB [Concomitant]

REACTIONS (22)
  - ABDOMINAL PAIN [None]
  - ANAEMIA [None]
  - ASTHENIA [None]
  - BREATH SOUNDS ABNORMAL [None]
  - COLITIS ISCHAEMIC [None]
  - DISEASE PROGRESSION [None]
  - DYSPNOEA [None]
  - ENDOSCOPY [None]
  - FATIGUE [None]
  - GASTRIC ULCER [None]
  - GASTROINTESTINAL HAEMORRHAGE [None]
  - HAEMATOCRIT DECREASED [None]
  - HAEMOGLOBIN DECREASED [None]
  - HEART RATE INCREASED [None]
  - KYPHOSIS [None]
  - MUSCLE SPASMS [None]
  - MYELODYSPLASTIC SYNDROME [None]
  - OCCULT BLOOD POSITIVE [None]
  - PALLOR [None]
  - PITTING OEDEMA [None]
  - SERUM FERRITIN INCREASED [None]
  - VASCULAR CAUTERISATION [None]
